FAERS Safety Report 6043797-X (Version None)
Quarter: 2009Q1

REPORT INFORMATION
  Report Type: 
  Country: None (occurrence: None)
  Receive Date: 20090120
  Receipt Date: 20090114
  Transmission Date: 20090719
  Serious: Yes (Other)
  Sender: FDA-Public Use
  Company Number: PHHY2009NL01309

PATIENT
  Sex: Male

DRUGS (1)
  1. LAMISIL [Suspect]
     Indication: ORAL FUNGAL INFECTION
     Dosage: 250 MG UNK
     Route: 048

REACTIONS (1)
  - HAEMORRHAGE [None]
